FAERS Safety Report 5708128-0 (Version None)
Quarter: 2008Q2

REPORT INFORMATION
  Report Type: 
  Country: None (occurrence: None)
  Receive Date: 20080417
  Receipt Date: 20080410
  Transmission Date: 20081010
  Serious: Yes (Hospitalization)
  Sender: FDA-Public Use
  Company Number: A0722144A

PATIENT
  Age: 59 Year
  Sex: Male

DRUGS (2)
  1. LANOXIN [Suspect]
     Indication: CARDIOMYOPATHY
     Dosage: .2MG PER DAY
     Route: 048
  2. VERAPAMIL [Concomitant]

REACTIONS (2)
  - HYPERSENSITIVITY [None]
  - UNEVALUABLE EVENT [None]
